FAERS Safety Report 6469395-1 (Version None)
Quarter: 2009Q4

REPORT INFORMATION
  Report Type: 
  Country: None (occurrence: None)
  Receive Date: 20091202
  Receipt Date: 20091202
  Transmission Date: 20100525
  Serious: Yes (Hospitalization)
  Sender: FDA-Public Use
  Company Number: None

PATIENT
  Age: 60 Year
  Sex: Male
  Weight: 105 kg

DRUGS (1)
  1. MINOXIDIL [Suspect]
     Dosage: 20 MG BID PO
     Route: 048
     Dates: start: 20050307, end: 20090821

REACTIONS (2)
  - ELECTROCARDIOGRAM ABNORMAL [None]
  - PERICARDIAL EFFUSION [None]
